FAERS Safety Report 12067867 (Version 1)
Quarter: 2016Q1

REPORT INFORMATION
  Report Type: Spontaneous
  Country: US (occurrence: US)
  Receive Date: 20160210
  Receipt Date: 20160210
  Transmission Date: 20160526
  Serious: No
  Sender: FDA-Public Use
  Company Number: US-ALLERGAN-1523934US

PATIENT
  Age: 48 Year
  Sex: Female

DRUGS (2)
  1. JUVEDERM [Suspect]
     Active Substance: HYALURONIC ACID
     Indication: SKIN WRINKLING
     Dosage: UNK UNK, SINGLE
     Dates: start: 201511, end: 201511
  2. BOTOX COSMETIC [Suspect]
     Active Substance: ONABOTULINUMTOXINA
     Indication: SKIN WRINKLING
     Dosage: UNK, SINGLE
     Route: 030
     Dates: start: 20151103, end: 20151103

REACTIONS (4)
  - Herpes simplex [Not Recovered/Not Resolved]
  - Off label use [Unknown]
  - Nasal oedema [Unknown]
  - Rhinalgia [Unknown]
